FAERS Safety Report 14739658 (Version 1)
Quarter: 2018Q2

REPORT INFORMATION
  Report Type: Spontaneous
  Country: ID (occurrence: ID)
  Receive Date: 20180410
  Receipt Date: 20180410
  Transmission Date: 20180711
  Serious: Yes (Hospitalization, Other)
  Sender: FDA-Public Use
  Company Number: ID-B.I. PHARMACEUTICALS,INC./RIDGEFIELD-2018-BI-007885

PATIENT
  Age: 75 Year
  Sex: Female

DRUGS (2)
  1. GILOTRIF [Suspect]
     Active Substance: AFATINIB
     Indication: NON-SMALL CELL LUNG CANCER
     Route: 065
     Dates: start: 201801, end: 20180209
  2. GILOTRIF [Suspect]
     Active Substance: AFATINIB
     Route: 065
     Dates: end: 20180329

REACTIONS (9)
  - Diarrhoea [Not Recovered/Not Resolved]
  - Disease progression [Unknown]
  - Asthenia [Not Recovered/Not Resolved]
  - Paronychia [Recovering/Resolving]
  - Dehydration [Not Recovered/Not Resolved]
  - Rash [Recovered/Resolved]
  - Off label use [Unknown]
  - Diarrhoea [Recovering/Resolving]
  - Stomatitis [Recovering/Resolving]

NARRATIVE: CASE EVENT DATE: 201801
